FAERS Safety Report 5693747-0 (Version None)
Quarter: 2008Q2

REPORT INFORMATION
  Report Type: 
  Country: None (occurrence: None)
  Receive Date: 20080403
  Receipt Date: 20080401
  Transmission Date: 20081010
  Serious: Yes (Hospitalization)
  Sender: FDA-Public Use
  Company Number: KR-ASTRAZENECA-2008AP02239

PATIENT
  Age: 618 Month
  Sex: Female

DRUGS (2)
  1. IRESSA [Suspect]
     Indication: NON-SMALL CELL LUNG CANCER
     Route: 048
     Dates: start: 20070702, end: 20070808
  2. IRESSA [Suspect]
     Route: 048
     Dates: start: 20070829, end: 20071029

REACTIONS (1)
  - HEPATITIS TOXIC [None]
